FAERS Safety Report 10149699 (Version 1)
Quarter: 2014Q2

REPORT INFORMATION
  Report Type: Spontaneous
  Country: CH (occurrence: None)
  Receive Date: 20140430
  Receipt Date: 20140430
  Transmission Date: 20141212
  Serious: Yes (Other)
  Sender: FDA-Public Use
  Company Number: FK201401513

PATIENT
  Age: 75 Year
  Sex: Male

DRUGS (9)
  1. DOXORUBICIN (MANUFACTURER UNKNOWN) (DOXORUBICIN HYDROCHLORIDE) (DOXORUBICIN HYDROCHLORIDE) [Suspect]
     Indication: ILL-DEFINED DISORDER
     Dosage: FOUR CYCLES
  2. BLEOMYCIN (MANUFACTURER UNKNOWN) (BLEOMYCIN) (BLEOMYCIN) [Suspect]
     Indication: HODGKIN^S DISEASE
     Dosage: FOUR CYCLES
  3. VINBLASTINE (MANUFACTURER UNKNOWN) (VINBLASTINE SULFATE) (VINBLASTINE SULFATE) [Suspect]
     Indication: HODGKIN^S DISEASE
     Dosage: FOUR CYCLES
  4. DACARBAZINE (MANUFACTURER UNKNOWN) (DACARBAZINE) (DACARBAZINE) [Suspect]
     Indication: HODGKIN^S DISEASE
     Dosage: FOUR CYCLES
  5. FLUDARABINE (MANUFACTURER UNKNOWN) (FLUDARABINE PHOSPHATE) (FLUDARABINE PHOSPHATE) [Suspect]
     Dosage: 2006 AND 2009
  6. CYCLOPHOSPHAMIDE (MANUFACTURER UNKNOWN) (CYCLOPHOSPHAMIDE) (CYCLOPHOSPHAMIDE) [Suspect]
     Indication: IMMUNE THROMBOCYTOPENIC PURPURA
     Dates: start: 2007
  7. PREDNISONE (PREDNISONE) (PREDNISONE) [Suspect]
  8. RITUXIMAB (RITUXIMAB) (RITUXIMAB) [Suspect]
     Dosage: 2009 AND 2009
  9. IMMUNEGLOBULIN (IMMUNOGLOBULINS NOS) [Concomitant]

REACTIONS (2)
  - Hypogammaglobulinaemia [None]
  - Pneumonia bacterial [None]
